FAERS Safety Report 22182363 (Version 1)
Quarter: 2023Q2

REPORT INFORMATION
  Report Type: Report from Study
  Country: US (occurrence: US)
  Receive Date: 20230406
  Receipt Date: 20230406
  Transmission Date: 20230721
  Serious: Yes (Hospitalization, Other)
  Sender: FDA-Public Use
  Company Number: US-JNJFOC-20221224984

PATIENT
  Age: 50 Year
  Sex: Male
  Weight: 115.32 kg

DRUGS (11)
  1. SELEXIPAG [Suspect]
     Active Substance: SELEXIPAG
     Indication: Pulmonary arterial hypertension
     Route: 048
     Dates: start: 202210
  2. SELEXIPAG [Suspect]
     Active Substance: SELEXIPAG
     Dosage: TAKING 2-200MCG TABLETS PER DOSE
     Route: 048
  3. SELEXIPAG [Suspect]
     Active Substance: SELEXIPAG
     Route: 048
     Dates: start: 202210
  4. SELEXIPAG [Suspect]
     Active Substance: SELEXIPAG
     Route: 048
     Dates: start: 20221102, end: 20221222
  5. ASPIRIN [Concomitant]
     Active Substance: ASPIRIN
     Dosage: TAKE 1 TABLET BY MOUTH DAILY
     Route: 048
  6. TADALAFIL [Concomitant]
     Active Substance: TADALAFIL
     Indication: Pulmonary hypertension
     Dosage: TAKE 1 TABLET BY MOUTH DAILY
     Route: 048
  7. DEMADEX [Concomitant]
     Active Substance: TORSEMIDE
     Indication: Weight increased
     Dosage: TAKE ONE TABLET DAILY AND ONE ADDITIONAL TABLET DAILY FOR WEIGHT GAIN 3 LBS ONE DAY OR 5 LBS ONE WEE
  8. NORVASC [Concomitant]
     Active Substance: AMLODIPINE BESYLATE
     Route: 048
  9. NORVASC [Concomitant]
     Active Substance: AMLODIPINE BESYLATE
     Route: 048
  10. CRESTOR [Concomitant]
     Active Substance: ROSUVASTATIN CALCIUM
     Dosage: TAKE 1 TABLET BY MOUTH DAILY
     Route: 048
  11. TYVASO [Concomitant]
     Active Substance: TREPROSTINIL
     Dosage: 0.6 MG/ML

REACTIONS (7)
  - Delirium [Recovered/Resolved]
  - Aggression [Recovered/Resolved]
  - Urosepsis [Unknown]
  - Headache [Recovered/Resolved]
  - Fatigue [Recovered/Resolved]
  - Nausea [Recovered/Resolved]
  - Diarrhoea [Recovered/Resolved]

NARRATIVE: CASE EVENT DATE: 20221114
